FAERS Safety Report 4579480-7 (Version None)
Quarter: 2005Q1

REPORT INFORMATION
  Report Type: 
  Country: None (occurrence: None)
  Receive Date: 20050209
  Receipt Date: 20050128
  Transmission Date: 20050727
  Serious: Yes (Death, Life-Threatening, Hospitalization, Disabling)
  Sender: FDA-Public Use
  Company Number: DE_031212552

PATIENT
  Age: 38 Year
  Sex: Male

DRUGS (3)
  1. GEMZAR [Suspect]
     Indication: HODGKIN'S DISEASE
     Dosage: 1000 MG/M2 PER INFUSION OTHER
     Dates: start: 20030401, end: 20031001
  2. RITUXIMAB [Concomitant]
  3. CISPLATIN [Concomitant]

REACTIONS (15)
  - ANAEMIA [None]
  - BLOOD CREATININE INCREASED [None]
  - BLOOD LACTATE DEHYDROGENASE INCREASED [None]
  - DIALYSIS [None]
  - EPILEPSY [None]
  - HAEMOLYTIC URAEMIC SYNDROME [None]
  - HODGKIN'S DISEASE [None]
  - HYPERTENSION [None]
  - MALIGNANT NEOPLASM PROGRESSION [None]
  - OEDEMA PERIPHERAL [None]
  - PLASMAPHERESIS [None]
  - PNEUMOCYSTIS JIROVECI PNEUMONIA [None]
  - RED BLOOD CELL SCHISTOCYTES PRESENT [None]
  - SOMNOLENCE [None]
  - THROMBOCYTOPENIA [None]
